FAERS Safety Report 4959128-X (Version None)
Quarter: 2006Q1

REPORT INFORMATION
  Report Type: 
  Country: None (occurrence: None)
  Receive Date: 20060330
  Receipt Date: 20060330
  Transmission Date: 20060701
  Serious: Yes (Hospitalization)
  Sender: FDA-Public Use
  Company Number: None

PATIENT
  Age: 63 Year
  Sex: Male
  Weight: 54.4316 kg

DRUGS (5)
  1. DILANTIN [Suspect]
     Indication: CONVULSION
     Route: 048
     Dates: start: 19670101
  2. DILANTIN [Concomitant]
  3. PAXIL [Concomitant]
  4. ALBUTEROL [Concomitant]
  5. FOLTX [Concomitant]

REACTIONS (5)
  - COORDINATION ABNORMAL [None]
  - FALL [None]
  - HEAD INJURY [None]
  - INCORRECT DOSE ADMINISTERED [None]
  - INJURY [None]
